FAERS Safety Report 13104687 (Version 1)
Quarter: 2017Q1

REPORT INFORMATION
  Report Type: Spontaneous
  Country: AR (occurrence: AR)
  Receive Date: 20170111
  Receipt Date: 20170111
  Transmission Date: 20170428
  Serious: Yes (Hospitalization)
  Sender: FDA-Public Use
  Company Number: PHHY2017AR003312

PATIENT
  Age: 55 Year
  Sex: Male

DRUGS (1)
  1. ULTIBRO BREEZHALER [Suspect]
     Active Substance: GLYCOPYRRONIUM\INDACATEROL
     Indication: CHRONIC OBSTRUCTIVE PULMONARY DISEASE
     Dosage: UNK
     Route: 065
     Dates: start: 20161006, end: 20161112

REACTIONS (5)
  - Malaise [Unknown]
  - Hyperthyroidism [Unknown]
  - Dyspnoea [Unknown]
  - Atrial fibrillation [Unknown]
  - Agitation [Unknown]

NARRATIVE: CASE EVENT DATE: 20161112
